FAERS Safety Report 25537761 (Version 2)
Quarter: 2025Q4

REPORT INFORMATION
  Report Type: Report from Study
  Country: CA (occurrence: CA)
  Receive Date: 20250710
  Receipt Date: 20251022
  Transmission Date: 20260119
  Serious: Yes (Hospitalization)
  Sender: CELLTRION
  Company Number: CA-CELLTRION INC.-2025CA021924

PATIENT

DRUGS (6)
  1. HADLIMA [Suspect]
     Active Substance: ADALIMUMAB-BWWD
     Indication: Sarcoidosis
     Dosage: 40 MG, 1 EVERY 2 WEEKS
  2. ADALIMUMAB [Suspect]
     Active Substance: ADALIMUMAB
     Indication: Sarcoidosis
     Dosage: 40 MG, 1 EVERY 2 WEEKS
  3. ADALIMUMAB [Suspect]
     Active Substance: ADALIMUMAB
  4. PREDNISONE [Concomitant]
     Active Substance: PREDNISONE
     Indication: Product used for unknown indication
  5. SUBOXONE [Concomitant]
     Active Substance: BUPRENORPHINE HYDROCHLORIDE\NALOXONE HYDROCHLORIDE
     Indication: Product used for unknown indication
  6. VENTOLIN [Concomitant]
     Active Substance: ALBUTEROL SULFATE
     Indication: Product used for unknown indication

REACTIONS (18)
  - Gait disturbance [Not Recovered/Not Resolved]
  - Injury [Not Recovered/Not Resolved]
  - Lung disorder [Not Recovered/Not Resolved]
  - Post-traumatic amnestic disorder [Not Recovered/Not Resolved]
  - Rib fracture [Not Recovered/Not Resolved]
  - Psychological trauma [Not Recovered/Not Resolved]
  - Road traffic accident [Not Recovered/Not Resolved]
  - Skin abrasion [Not Recovered/Not Resolved]
  - Spinal fracture [Not Recovered/Not Resolved]
  - Stress [Not Recovered/Not Resolved]
  - Peripheral swelling [Not Recovered/Not Resolved]
  - Dyspnoea [Not Recovered/Not Resolved]
  - Dyspnoea exertional [Not Recovered/Not Resolved]
  - Headache [Not Recovered/Not Resolved]
  - Nausea [Not Recovered/Not Resolved]
  - Vomiting [Not Recovered/Not Resolved]
  - Off label use [Not Recovered/Not Resolved]
  - Intentional product use issue [Unknown]
